FAERS Safety Report 6086099-8 (Version None)
Quarter: 2009Q1

REPORT INFORMATION
  Report Type: 
  Country: None (occurrence: None)
  Receive Date: 20090217
  Receipt Date: 20080424
  Transmission Date: 20090719
  Serious: Yes (Other)
  Sender: FDA-Public Use
  Company Number: MC200800203

PATIENT
  Sex: Male

DRUGS (1)
  1. ANGIOMAX [Suspect]
     Indication: AORTIC VALVE REPLACEMENT
     Dosage: BOLUS, INTRAVENOUS
     Route: 040
     Dates: start: 20080423, end: 20080423

REACTIONS (1)
  - HAEMORRHAGE [None]
